FAERS Safety Report 4330846-X (Version None)
Quarter: 2004Q1

REPORT INFORMATION
  Report Type: 
  Country: None (occurrence: None)
  Receive Date: 20040331
  Receipt Date: 20040303
  Transmission Date: 20041129
  Serious: Yes (Life-Threatening, Hospitalization)
  Sender: FDA-Public Use
  Company Number: US067910

PATIENT
  Age: 61 Year
  Sex: Female
  Weight: 88.5 kg

DRUGS (12)
  1. ENBREL [Suspect]
     Dosage: 25 MG, 2 IN 1 WEEKS, SC
     Route: 058
     Dates: start: 20021209
  2. FLUCONAZOLE [Suspect]
     Dosage: 200 MG, 1 IN 1 DAYS
     Dates: start: 20040130, end: 20040213
  3. CYCLOSPORINE [Concomitant]
  4. WARFRIN SODIUM [Concomitant]
  5. IBUPROFEN [Concomitant]
  6. CELECOXIB [Concomitant]
  7. FOLIC ACID [Concomitant]
  8. ESTROGENS CONJUGATED [Concomitant]
  9. LISINOPRIL [Concomitant]
  10. CENTRUM [Concomitant]
  11. VITAMIN B COMPLEX CAP [Concomitant]
  12. DESLORATADINE [Concomitant]

REACTIONS (5)
  - CANDIDIASIS [None]
  - DRUG LEVEL INCREASED [None]
  - INTERNATIONAL NORMALISED RATIO INCREASED [None]
  - OROPHARYNGEAL CANDIDIASIS [None]
  - SINUSITIS [None]
